FAERS Safety Report 9820825 (Version 1)
Quarter: 2014Q1

REPORT INFORMATION
  Report Type: Spontaneous
  Country: US (occurrence: US)
  Receive Date: 20140116
  Receipt Date: 20140116
  Transmission Date: 20141002
  Serious: No
  Sender: FDA-Public Use
  Company Number: US-PFIZER INC-2014014393

PATIENT
  Age: 58 Year
  Sex: Male
  Weight: 111 kg

DRUGS (1)
  1. LYRICA [Suspect]
     Indication: NEURALGIA
     Dosage: 225 MG, 2X/DAY
     Route: 048

REACTIONS (2)
  - Malaise [Recovering/Resolving]
  - Feeling cold [Recovering/Resolving]
